FAERS Safety Report 21686550 (Version 1)
Quarter: 2022Q4

REPORT INFORMATION
  Report Type: Report from Study
  Country: FR (occurrence: FR)
  Receive Date: 20221206
  Receipt Date: 20221206
  Transmission Date: 20230113
  Serious: Yes (Hospitalization, Other)
  Sender: FDA-Public Use
  Company Number: FR-TAKEDA-2022TUS092600

PATIENT
  Sex: Male

DRUGS (14)
  1. TEDUGLUTIDE [Suspect]
     Active Substance: TEDUGLUTIDE
     Indication: Short-bowel syndrome
     Dosage: 3.6 MILLIGRAM, QD
     Route: 042
     Dates: start: 20161221, end: 20170607
  2. TEDUGLUTIDE [Suspect]
     Active Substance: TEDUGLUTIDE
     Indication: Short-bowel syndrome
     Dosage: 3.6 MILLIGRAM, QD
     Route: 042
     Dates: start: 20161221, end: 20170607
  3. TEDUGLUTIDE [Suspect]
     Active Substance: TEDUGLUTIDE
     Indication: Short-bowel syndrome
     Dosage: 3.6 MILLIGRAM, QD
     Route: 042
     Dates: start: 20161221, end: 20170607
  4. TEDUGLUTIDE [Suspect]
     Active Substance: TEDUGLUTIDE
     Indication: Short-bowel syndrome
     Dosage: 3.6 MILLIGRAM, QD
     Route: 042
     Dates: start: 20161221, end: 20170607
  5. TEDUGLUTIDE [Suspect]
     Active Substance: TEDUGLUTIDE
     Dosage: 4 MILLIGRAM, QD
     Route: 042
     Dates: start: 20170607
  6. TEDUGLUTIDE [Suspect]
     Active Substance: TEDUGLUTIDE
     Dosage: 4 MILLIGRAM, QD
     Route: 042
     Dates: start: 20170607
  7. TEDUGLUTIDE [Suspect]
     Active Substance: TEDUGLUTIDE
     Dosage: 4 MILLIGRAM, QD
     Route: 042
     Dates: start: 20170607
  8. TEDUGLUTIDE [Suspect]
     Active Substance: TEDUGLUTIDE
     Dosage: 4 MILLIGRAM, QD
     Route: 042
     Dates: start: 20170607
  9. IMODIUM [Concomitant]
     Active Substance: LOPERAMIDE HYDROCHLORIDE
     Indication: Diarrhoea
     Dosage: 1 DOSAGE FORM
     Route: 048
     Dates: start: 20190614
  10. IMODIUM [Concomitant]
     Active Substance: LOPERAMIDE HYDROCHLORIDE
     Indication: Prophylaxis
  11. IMODIUM [Concomitant]
     Active Substance: LOPERAMIDE HYDROCHLORIDE
     Indication: Renal failure
  12. BISOPROLOL FUMARATE [Concomitant]
     Active Substance: BISOPROLOL FUMARATE
     Indication: Prophylaxis
     Dosage: 1.25 MILLIGRAM, QD
     Route: 048
     Dates: start: 20181120
  13. KARDEGIC [Concomitant]
     Active Substance: ASPIRIN DL-LYSINE
     Indication: Gait disturbance
     Dosage: 75 MILLIGRAM, QD
     Route: 048
  14. KAYEXALATE [Concomitant]
     Active Substance: SODIUM POLYSTYRENE SULFONATE
     Indication: Chronic kidney disease
     Dosage: UNK UNK, QD
     Route: 065

REACTIONS (1)
  - Renal failure [Recovered/Resolved]

NARRATIVE: CASE EVENT DATE: 20201104
